FAERS Safety Report 24348005 (Version 1)
Quarter: 2024Q3

REPORT INFORMATION
  Report Type: Spontaneous
  Country: CN (occurrence: CN)
  Receive Date: 20240923
  Receipt Date: 20240923
  Transmission Date: 20241017
  Serious: Yes (Life-Threatening, Hospitalization, Other)
  Sender: NOVO NORDISK
  Company Number: None

PATIENT
  Age: 30 Year
  Sex: Female
  Weight: 75 kg

DRUGS (3)
  1. OZEMPIC [Suspect]
     Active Substance: SEMAGLUTIDE
     Indication: Type 2 diabetes mellitus
     Dosage: 0.5MG, QW
     Route: 058
     Dates: start: 20240907, end: 20240907
  2. METFORMIN HYDROCHLORIDE [Concomitant]
     Active Substance: METFORMIN HYDROCHLORIDE
     Indication: Type 2 diabetes mellitus
     Dosage: 0.5G, BID
     Route: 048
     Dates: start: 20240902
  3. DAPAGLIFLOZIN [Concomitant]
     Active Substance: DAPAGLIFLOZIN
     Indication: Type 2 diabetes mellitus
     Dosage: 10MG, QD
     Route: 048
     Dates: start: 20240902

REACTIONS (9)
  - Vomiting [Recovering/Resolving]
  - Diabetic ketoacidosis [Recovering/Resolving]
  - White blood cell count increased [Recovering/Resolving]
  - Neutrophil count increased [Recovering/Resolving]
  - Hyperkalaemia [Recovering/Resolving]
  - Blood creatinine increased [Recovering/Resolving]
  - Blood lactic acid increased [Recovering/Resolving]
  - Amylase increased [Recovering/Resolving]
  - Nausea [Recovering/Resolving]

NARRATIVE: CASE EVENT DATE: 20240908
